FAERS Safety Report 8321225-9 (Version None)
Quarter: 2012Q2

REPORT INFORMATION
  Report Type: 
  Country: None (occurrence: None)
  Receive Date: 20120430
  Receipt Date: 20120418
  Transmission Date: 20120825
  Serious: Yes (Death, Other)
  Sender: FDA-Public Use
  Company Number: CN-JNJFOC-20111005243

PATIENT
  Sex: Male
  Weight: 60 kg

DRUGS (2)
  1. SPORANOX [Suspect]
     Indication: PULMONARY MYCOSIS
     Dosage: FOR 3 DAYS
     Route: 042
     Dates: start: 20110901, end: 20111006
  2. SPORANOX [Suspect]
     Indication: MYELODYSPLASTIC SYNDROME
     Dosage: FOR 3 DAYS
     Route: 042
     Dates: start: 20110901, end: 20111006

REACTIONS (1)
  - CARDIAC FAILURE ACUTE [None]
